FAERS Safety Report 8097355-6 (Version None)
Quarter: 2012Q1

REPORT INFORMATION
  Report Type: 
  Country: None (occurrence: None)
  Receive Date: 20120128
  Receipt Date: 20110715
  Transmission Date: 20120608
  Serious: No
  Sender: FDA-Public Use
  Company Number: US-ABBOTT-11P-163-0839656-00

PATIENT
  Sex: Male
  Weight: 47.67 kg

DRUGS (6)
  1. ZANTAC [Concomitant]
     Indication: GASTROOESOPHAGEAL REFLUX DISEASE
  2. BENADRYL [Concomitant]
     Indication: PAIN
  3. VALIUM [Concomitant]
     Indication: PAIN
  4. HUMIRA [Suspect]
     Indication: CROHN'S DISEASE
     Dates: start: 20110101, end: 20110618
  5. TYLENOL PM [Concomitant]
     Indication: POOR QUALITY SLEEP
  6. ENEMA [Concomitant]
     Indication: CONSTIPATION

REACTIONS (1)
  - DRUG INEFFECTIVE [None]
